FAERS Safety Report 23211241 (Version 3)
Quarter: 2024Q1

REPORT INFORMATION
  Report Type: Spontaneous
  Country: US (occurrence: US)
  Receive Date: 20231121
  Receipt Date: 20240226
  Transmission Date: 20240410
  Serious: No
  Sender: FDA-Public Use
  Company Number: US-SA-SAC20231116000819

PATIENT
  Age: 72 Year
  Sex: Female

DRUGS (1)
  1. DUPIXENT [Suspect]
     Active Substance: DUPILUMAB
     Indication: Neurodermatitis
     Dosage: 300 MG, QOW
     Route: 058

REACTIONS (13)
  - Skin ulcer [Recovering/Resolving]
  - Therapeutic response decreased [Recovering/Resolving]
  - Ear swelling [Unknown]
  - Ear pruritus [Unknown]
  - Tendonitis [Unknown]
  - Rhinorrhoea [Unknown]
  - Rhinitis [Unknown]
  - Neck pain [Unknown]
  - Skin mass [Unknown]
  - Pruritus [Unknown]
  - Neurodermatitis [Unknown]
  - Accidental exposure to product [Unknown]
  - Exposure via skin contact [Unknown]
